FAERS Safety Report 9173360 (Version 1)
Quarter: 2013Q1

REPORT INFORMATION
  Report Type: Spontaneous
  Country: GB (occurrence: None)
  Receive Date: 20130314
  Receipt Date: 20130314
  Transmission Date: 20140127
  Serious: Yes (Life-Threatening)
  Sender: FDA-Public Use
  Company Number: AUR-APL-2013-02173

PATIENT
  Age: 58 Year
  Sex: Male

DRUGS (9)
  1. CIPROFLOXACIN (CIPROFLOXACIN) [Suspect]
     Dates: start: 20130216, end: 20130221
  2. CIPROFLOXACIN (CIPROFLOXACIN) [Suspect]
     Dates: start: 20130216, end: 20130221
  3. CIPROFLOXACIN (CIPROFLOXACIN) [Suspect]
     Dates: start: 20130216, end: 20130221
  4. CIPROFLOXACIN (CIPROFLOXACIN) [Suspect]
     Dates: start: 20130216, end: 20130221
  5. CIPROFLOXACIN (CIPROFLOXACIN) [Suspect]
     Dates: start: 20130216, end: 20130221
  6. ACICLOVIR [Suspect]
  7. CO-TRIMOXAZOLE [Suspect]
  8. LANSOPRAZOLE (LANSOPRAZOLE) [Suspect]
  9. TACROLIMUS (TACROLIMUS) [Suspect]

REACTIONS (1)
  - Idiopathic thrombocytopenic purpura [None]
